FAERS Safety Report 22211319 (Version 1)
Quarter: 2023Q2

REPORT INFORMATION
  Report Type: Spontaneous
  Country: US (occurrence: None)
  Receive Date: 20230413
  Receipt Date: 20230413
  Transmission Date: 20230722
  Serious: Yes (Hospitalization)
  Sender: FDA-Public Use
  Company Number: None

PATIENT
  Sex: Female

DRUGS (1)
  1. MAKENA [Suspect]
     Active Substance: HYDROXYPROGESTERONE CAPROATE
     Indication: Prenatal care
     Dosage: OTHER STRENGTH : 275MG/1.1M;?FREQUENCY : WEEKLY;?
     Route: 058
     Dates: start: 20230307

REACTIONS (2)
  - Abortion spontaneous [None]
  - Exposure during pregnancy [None]
